FAERS Safety Report 5263357-8 (Version None)
Quarter: 2007Q1

REPORT INFORMATION
  Report Type: 
  Country: None (occurrence: None)
  Receive Date: 20070313
  Receipt Date: 20070228
  Transmission Date: 20070707
  Serious: Yes (Hospitalization, Other)
  Sender: FDA-Public Use
  Company Number: PHNU2004DE03428

PATIENT
  Age: 72 Year
  Sex: Female
  Weight: 62 kg

DRUGS (5)
  1. AREDIA [Suspect]
     Indication: METASTASES TO BONE
     Dosage: UNK, UNK
     Route: 042
     Dates: start: 19990101, end: 20030101
  2. FEMARA [Concomitant]
     Indication: BREAST CANCER
     Route: 048
     Dates: start: 19990101
  3. CHEMOTHERAPEUTICS,OTHER [Suspect]
     Indication: BREAST CANCER
     Route: 065
     Dates: start: 19990101, end: 20000101
  4. INSULIN [Concomitant]
  5. ZOMETA [Suspect]
     Indication: METASTASES TO BONE
     Dosage: 4 MG, QMO
     Route: 042
     Dates: start: 20030101

REACTIONS (11)
  - BIOPSY SITE UNSPECIFIED ABNORMAL [None]
  - BONE DISORDER [None]
  - BONE FISTULA [None]
  - DENTAL OPERATION [None]
  - FISTULA [None]
  - OSTECTOMY [None]
  - OSTEOMYELITIS [None]
  - PRIMARY SEQUESTRUM [None]
  - SECRETION DISCHARGE [None]
  - SINUSITIS [None]
  - WOUND DEBRIDEMENT [None]
